FAERS Safety Report 26075125 (Version 1)
Quarter: 2025Q4

REPORT INFORMATION
  Report Type: Spontaneous
  Country: US (occurrence: US)
  Receive Date: 20251121
  Receipt Date: 20251121
  Transmission Date: 20260118
  Serious: No
  Sender: VERASTEM
  Company Number: US-VERASTEM-250813US-AFCPK-00455

PATIENT

DRUGS (1)
  1. AVMAPKI FAKZYNJA CO-PACK [Suspect]
     Active Substance: AVUTOMETINIB POTASSIUM\DEFACTINIB HYDROCHLORIDE
     Indication: Pancreatic carcinoma
     Dosage: TAKE AS DIRECTED PER DOSING CARD
     Route: 048
     Dates: start: 20250725, end: 20250922

REACTIONS (3)
  - Off label use [Unknown]
  - Intentional product use issue [Unknown]
  - Product dose omission issue [Unknown]

NARRATIVE: CASE EVENT DATE: 20250922
